FAERS Safety Report 18718099 (Version 1)
Quarter: 2021Q1

REPORT INFORMATION
  Report Type: Report from Study
  Country: US (occurrence: US)
  Receive Date: 20210108
  Receipt Date: 20210108
  Transmission Date: 20210419
  Serious: Yes (Other)
  Sender: FDA-Public Use
  Company Number: US-TEVA-2018-US-871382

PATIENT
  Age: 37 Year
  Sex: Male

DRUGS (3)
  1. AUSTEDO [Suspect]
     Active Substance: DEUTETRABENAZINE
     Dosage: 48 MILLIGRAM DAILY; TWO 12 MG TABLETS TWICE A DAY. MAINTENANCE DOSE.
     Route: 065
     Dates: end: 20180115
  2. AUSTEDO [Suspect]
     Active Substance: DEUTETRABENAZINE
     Indication: TARDIVE DYSKINESIA
     Dosage: NEW TITRATING PATIENT
     Route: 065
     Dates: start: 20171220
  3. SEROQUEL [Concomitant]
     Active Substance: QUETIAPINE FUMARATE

REACTIONS (4)
  - Mental disorder [Unknown]
  - Hallucination [Unknown]
  - Intentional self-injury [Unknown]
  - Tremor [Unknown]

NARRATIVE: CASE EVENT DATE: 2018
